FAERS Safety Report 4697713-3 (Version None)
Quarter: 2005Q2

REPORT INFORMATION
  Report Type: 
  Country: None (occurrence: None)
  Receive Date: 20050119
  Receipt Date: 20050119
  Transmission Date: 20051028
  Serious: Yes (Other)
  Sender: FDA-Public Use
  Company Number: None

PATIENT
  Sex: Male

DRUGS (2)
  1. PHENYTOIN [Suspect]
     Indication: CEREBROVASCULAR ACCIDENT
     Dosage: 200 PO AM 300 PO PM
     Route: 048
     Dates: start: 20000808, end: 20000810
  2. PHENYTOIN [Suspect]
     Indication: CONVULSION
     Dosage: 200 PO AM 300 PO PM
     Route: 048
     Dates: start: 20000808, end: 20000810

REACTIONS (2)
  - CONDITION AGGRAVATED [None]
  - CONVULSION [None]
